FAERS Safety Report 8790587 (Version 1)
Quarter: 2012Q4

REPORT INFORMATION
  Report Type: 
  Country: US (occurrence: None)
  Receive Date: 20120912
  Receipt Date: 20120912
  Transmission Date: 20130627
  Serious: Yes (Hospitalization)
  Sender: FDA-Public Use
  Company Number: None

PATIENT
  Age: 73 Year
  Sex: Male
  Weight: 80.5 kg

DRUGS (1)
  1. ETODOLAC [Suspect]
     Indication: PAIN
     Dosage: unknown mg,
     Route: 048
     Dates: start: 20070822, end: 20120321

REACTIONS (3)
  - Lower gastrointestinal haemorrhage [None]
  - Gastrointestinal haemorrhage [None]
  - Rectal haemorrhage [None]
